FAERS Safety Report 6998175-3 (Version None)
Quarter: 2010Q3

REPORT INFORMATION
  Report Type: 
  Country: None (occurrence: None)
  Receive Date: 20100920
  Receipt Date: 20091207
  Transmission Date: 20110219
  Serious: Yes (Other)
  Sender: FDA-Public Use
  Company Number: US-ASTRAZENECA-2009SE33249

PATIENT
  Age: 13 Year
  Sex: Male

DRUGS (6)
  1. SEROQUEL [Suspect]
     Indication: SLEEP DISORDER
     Route: 048
     Dates: start: 20050801, end: 20051101
  2. ABILIFY [Suspect]
     Indication: AGORAPHOBIA
     Dosage: 2.5 TO 5 MG
     Dates: start: 20051101, end: 20051101
  3. FLUOXETINE [Concomitant]
     Indication: ANXIETY
  4. FLUOXETINE [Concomitant]
     Indication: OBSESSIVE-COMPULSIVE DISORDER
  5. PAROXETINE HCL [Concomitant]
     Indication: ANXIETY
  6. PAROXETINE HCL [Concomitant]
     Indication: AGORAPHOBIA

REACTIONS (2)
  - DIABETES MELLITUS [None]
  - DIABETIC KETOACIDOSIS [None]
